FAERS Safety Report 25055226 (Version 2)
Quarter: 2025Q2

REPORT INFORMATION
  Report Type: Report from Study
  Country: US (occurrence: US)
  Receive Date: 20250308
  Receipt Date: 20250507
  Transmission Date: 20250717
  Serious: Yes (Hospitalization)
  Sender: AMGEN
  Company Number: US-AMGEN-USASP2025042897

PATIENT
  Age: 76 Year
  Sex: Male

DRUGS (1)
  1. KRYSTEXXA [Suspect]
     Active Substance: PEGLOTICASE
     Indication: Gouty tophus
     Dosage: UNK, Q2WK (EVERY TWO WEEKS)
     Route: 040
     Dates: start: 20250107

REACTIONS (2)
  - Disease complication [Unknown]
  - Cardiac failure congestive [Unknown]

NARRATIVE: CASE EVENT DATE: 20250101
